FAERS Safety Report 6624857-9 (Version None)
Quarter: 2010Q1

REPORT INFORMATION
  Report Type: 
  Country: None (occurrence: None)
  Receive Date: 20100305
  Receipt Date: 20100218
  Transmission Date: 20100710
  Serious: Yes (Death, Hospitalization)
  Sender: FDA-Public Use
  Company Number: 2010020042

PATIENT
  Age: 56 Year
  Sex: Female
  Weight: 46.2669 kg

DRUGS (7)
  1. ONSOLIS [Suspect]
     Indication: CANCER PAIN
     Dosage: BU
     Route: 002
     Dates: start: 20091214, end: 20091214
  2. MS CONTIN [Concomitant]
  3. ALBUTEROL [Concomitant]
  4. SPIRIVA [Concomitant]
  5. NEURONTIN [Concomitant]
  6. ADVAIR DISKUS 100/50 [Concomitant]
  7. MORPHINE SULFATE [Concomitant]

REACTIONS (2)
  - LUNG NEOPLASM MALIGNANT [None]
  - MALIGNANT NEOPLASM PROGRESSION [None]
